FAERS Safety Report 9017029 (Version 3)
Quarter: 2013Q1

REPORT INFORMATION
  Report Type: Spontaneous
  Country: CO (occurrence: CO)
  Receive Date: 20130117
  Receipt Date: 20130228
  Transmission Date: 20140127
  Serious: Yes (Other)
  Sender: FDA-Public Use
  Company Number: PHHY2013CO003081

PATIENT
  Age: 49 None
  Sex: Female

DRUGS (5)
  1. SANDOSTATIN LAR [Suspect]
     Indication: ACROMEGALY
     Dosage: UNK UKN, UNK
     Dates: start: 201102
  2. SANDOSTATIN LAR [Suspect]
     Dosage: 30 MG, UNK
     Route: 030
     Dates: start: 20120730, end: 201301
  3. SANDOSTATIN LAR [Suspect]
     Dosage: 60 MG, PER MONTH
     Route: 030
     Dates: end: 20130208
  4. FLUOXETINE [Concomitant]
     Dosage: UNK UKN, UNK
  5. METFORMIN [Concomitant]

REACTIONS (10)
  - Arthralgia [Not Recovered/Not Resolved]
  - Movement disorder [Unknown]
  - Spinal osteoarthritis [Not Recovered/Not Resolved]
  - Osteoarthritis [Recovered/Resolved]
  - Spinal pain [Recovered/Resolved]
  - Pain in extremity [Recovered/Resolved]
  - Hypoaesthesia [Recovered/Resolved]
  - Multiple sclerosis [Not Recovered/Not Resolved]
  - Pain [Recovered/Resolved]
  - Headache [Recovered/Resolved]
